FAERS Safety Report 5246252-X (Version None)
Quarter: 2007Q1

REPORT INFORMATION
  Report Type: 
  Country: None (occurrence: None)
  Receive Date: 20070221
  Receipt Date: 20070206
  Transmission Date: 20070707
  Serious: Yes (Hospitalization)
  Sender: FDA-Public Use
  Company Number: S07-FRA-00238-01

PATIENT
  Age: 46 Year
  Sex: Male

DRUGS (3)
  1. SEROPLEX (ESCITALOPRAM) [Suspect]
     Indication: DEPRESSION
     Dosage: 20 MG QD PO
     Route: 048
     Dates: start: 20061207, end: 20061214
  2. XANAX [Concomitant]
  3. IMOVANE (ZOPICLONE) [Concomitant]

REACTIONS (3)
  - BILIARY DILATATION [None]
  - HEPATITIS [None]
  - LYMPHADENITIS [None]
